FAERS Safety Report 11212095 (Version 1)
Quarter: 2015Q2

REPORT INFORMATION
  Report Type: Spontaneous
  Country: DE (occurrence: DE)
  Receive Date: 20150623
  Receipt Date: 20150623
  Transmission Date: 20150821
  Serious: Yes (Other)
  Sender: FDA-Public Use
  Company Number: GXKR2015DE002899

PATIENT

DRUGS (5)
  1. MICARDIS [Concomitant]
     Active Substance: TELMISARTAN
     Indication: HYPERTENSION
     Route: 064
     Dates: start: 20120606, end: 20120712
  2. BISOPROLOL [Suspect]
     Active Substance: BISOPROLOL
     Indication: HYPERTENSION
     Dosage: 10 [MG/D ]
     Route: 064
     Dates: start: 20120713, end: 20130316
  3. PRESINOL [Suspect]
     Active Substance: METHYLDOPA
     Indication: HYPERTENSION
     Dosage: 1000 [MG/D ]/ INITIALLY 250MG/D, INCREASED DOSAGE TO 1000MG/D
     Route: 064
     Dates: start: 20120729, end: 20130316
  4. RASILEZ [Concomitant]
     Active Substance: ALISKIREN
     Dosage: 25 [MG/D ] / 300 [MG/D ]
     Route: 064
     Dates: start: 20120606, end: 20120712
  5. FOLSAEURE [Concomitant]
     Active Substance: FOLIC ACID
     Indication: PROPHYLAXIS OF NEURAL TUBE DEFECT
     Route: 064
     Dates: start: 20120711, end: 20130316

REACTIONS (1)
  - Small for dates baby [Recovering/Resolving]

NARRATIVE: CASE EVENT DATE: 20130316
